FAERS Safety Report 23638526 (Version 1)
Quarter: 2024Q1

REPORT INFORMATION
  Report Type: Spontaneous
  Country: ES (occurrence: ES)
  Receive Date: 20240315
  Receipt Date: 20240315
  Transmission Date: 20240410
  Serious: Yes (Hospitalization)
  Sender: FDA-Public Use
  Company Number: ES-AEMPS-1460377

PATIENT
  Age: 69 Year
  Sex: Male

DRUGS (6)
  1. METFORMIN\SITAGLIPTIN [Suspect]
     Active Substance: METFORMIN\SITAGLIPTIN
     Indication: Diabetes mellitus
     Dosage: UNK
     Route: 048
     Dates: start: 2021
  2. DOCETAXEL [Suspect]
     Active Substance: DOCETAXEL\DOCETAXEL ANHYDROUS
     Indication: Prostate cancer
     Dosage: UNK
     Route: 040
     Dates: start: 20230216, end: 20230310
  3. AMLODIPINE [Suspect]
     Active Substance: AMLODIPINE BESYLATE
     Indication: Hypertension
     Dosage: 5 MILLIGRAM, DAILY
     Route: 048
     Dates: start: 2019
  4. PREDNISONE [Concomitant]
     Active Substance: PREDNISONE
     Indication: Prostate cancer
     Dosage: 5 MILLIGRAM, BID
     Route: 048
     Dates: start: 20230201, end: 20230310
  5. ENZALUTAMIDE [Concomitant]
     Active Substance: ENZALUTAMIDE
     Indication: Prostate cancer
     Dosage: 160 MILLIGRAM, DAILY
     Route: 048
     Dates: start: 20220420, end: 20230221
  6. TRIPTORELIN [Concomitant]
     Active Substance: TRIPTORELIN
     Indication: Prostate cancer
     Dosage: UNK
     Route: 030
     Dates: start: 2020

REACTIONS (1)
  - Hepatitis cholestatic [Recovered/Resolved]

NARRATIVE: CASE EVENT DATE: 20230327
